FAERS Safety Report 6240903-9 (Version None)
Quarter: 2009Q2

REPORT INFORMATION
  Report Type: 
  Country: None (occurrence: None)
  Receive Date: 20090619
  Receipt Date: 20090604
  Transmission Date: 20091009
  Serious: Yes (Death)
  Sender: FDA-Public Use
  Company Number: 2009AL003020

PATIENT
  Age: 86 Year
  Sex: Male

DRUGS (1)
  1. DIGOXIN [Suspect]
     Dosage: PO
     Route: 048
     Dates: start: 20060216

REACTIONS (7)
  - CARDIO-RESPIRATORY ARREST [None]
  - ECONOMIC PROBLEM [None]
  - INJURY [None]
  - PULSE ABSENT [None]
  - SURGERY [None]
  - UNRESPONSIVE TO STIMULI [None]
  - VENTRICULAR FIBRILLATION [None]
